FAERS Safety Report 9027023 (Version 1)
Quarter: 2013Q1

REPORT INFORMATION
  Report Type: Spontaneous
  Country: US (occurrence: US)
  Receive Date: 20130123
  Receipt Date: 20130123
  Transmission Date: 20140127
  Serious: No
  Sender: FDA-Public Use
  Company Number: US-ASTRAZENECA-2013SE02251

PATIENT
  Age: 94 Year
  Sex: Female

DRUGS (1)
  1. FASLODEX [Suspect]
     Indication: BREAST CANCER FEMALE
     Dosage: EACH MONTH
     Route: 030

REACTIONS (4)
  - Communication disorder [Unknown]
  - Hypophagia [Unknown]
  - Body height decreased [Unknown]
  - Nausea [Unknown]
